FAERS Safety Report 8504270-X (Version None)
Quarter: 2012Q3

REPORT INFORMATION
  Report Type: 
  Country: None (occurrence: None)
  Receive Date: 20120711
  Receipt Date: 20120702
  Transmission Date: 20120928
  Serious: Yes (Other)
  Sender: FDA-Public Use
  Company Number: US-ABBOTT-11P-163-0876063-00

PATIENT
  Sex: Female
  Weight: 92.616 kg

DRUGS (8)
  1. ENBREL [Suspect]
     Indication: PRODUCT USED FOR UNKNOWN INDICATION
  2. TRAMADOL HCL [Concomitant]
     Indication: PAIN
     Dosage: 50 MG 2 TABLETS DAILY
  3. VITAMIN E [Concomitant]
     Indication: PRODUCT USED FOR UNKNOWN INDICATION
     Dosage: 100 IU DAILY
  4. HUMIRA [Suspect]
     Dates: start: 20110601
  5. HUMIRA [Suspect]
     Indication: RHEUMATOID ARTHRITIS
     Dates: start: 20070101
  6. LEFLUNOMIDE [Concomitant]
     Indication: UVEITIS
     Dates: end: 20111121
  7. VITAMIN D [Concomitant]
     Indication: PRODUCT USED FOR UNKNOWN INDICATION
     Dosage: 400 IU DAILY
  8. PREDNISONE [Suspect]

REACTIONS (14)
  - RHEUMATOID ARTHRITIS [None]
  - INJECTION SITE SWELLING [None]
  - GLAUCOMA [None]
  - CATARACT [None]
  - INTRAOCULAR PRESSURE INCREASED [None]
  - WEIGHT INCREASED [None]
  - MOBILITY DECREASED [None]
  - INJECTION SITE EXTRAVASATION [None]
  - UVEITIS [None]
  - DRUG INEFFECTIVE [None]
  - WEIGHT DECREASED [None]
  - OCULAR HYPERAEMIA [None]
  - VISUAL IMPAIRMENT [None]
  - ARTHRALGIA [None]
